FAERS Safety Report 17207177 (Version 1)
Quarter: 2019Q4

REPORT INFORMATION
  Report Type: Spontaneous
  Country: SE (occurrence: SE)
  Receive Date: 20191227
  Receipt Date: 20191227
  Transmission Date: 20200122
  Serious: Yes (Hospitalization)
  Sender: FDA-Public Use
  Company Number: SE-TEVA-2019-SE-1157217

PATIENT
  Sex: Female

DRUGS (3)
  1. STESOLID [Suspect]
     Active Substance: DIAZEPAM
     Route: 048
     Dates: start: 20180914, end: 20180914
  2. STILNOCT [Suspect]
     Active Substance: ZOLPIDEM TARTRATE
     Route: 048
     Dates: start: 20180914, end: 20180914
  3. PROPAVAN [Suspect]
     Active Substance: PROPIOMAZINE
     Dosage: 1500 MG
     Route: 048
     Dates: start: 20180914, end: 20180914

REACTIONS (4)
  - Intentional overdose [Unknown]
  - Lethargy [Unknown]
  - Suicidal ideation [Unknown]
  - Mydriasis [Unknown]

NARRATIVE: CASE EVENT DATE: 20180914
